FAERS Safety Report 7692172-0 (Version None)
Quarter: 2011Q3

REPORT INFORMATION
  Report Type: 
  Country: None (occurrence: None)
  Receive Date: 20110818
  Receipt Date: 20110815
  Transmission Date: 20111222
  Serious: No
  Sender: FDA-Public Use
  Company Number: PHHY2011CA27736

PATIENT
  Sex: Female

DRUGS (6)
  1. ASPIRIN [Concomitant]
     Dosage: UNK UKN, UNK
  2. CARBOCAL [Concomitant]
     Dosage: UNK UKN, UNK
  3. ZOLEDRONOC ACID [Suspect]
     Indication: OSTEOPOROSIS
     Dosage: 5 MG, UNK
     Route: 042
     Dates: start: 20090401
  4. ZOLEDRONOC ACID [Suspect]
     Dosage: 5 MG, UNK
     Route: 042
     Dates: start: 20100419
  5. MONOCOR [Concomitant]
     Dosage: UNK UKN, UNK
  6. HCT ^CT-ARZNEIMITTEL^ [Concomitant]
     Dosage: UNK UKN, UNK

REACTIONS (2)
  - MALAISE [None]
  - FALL [None]
